FAERS Safety Report 9486386 (Version 1)
Quarter: 2013Q3

REPORT INFORMATION
  Report Type: Spontaneous
  Country: FR (occurrence: FR)
  Receive Date: 20130829
  Receipt Date: 20130829
  Transmission Date: 20140515
  Serious: Yes (Other)
  Sender: FDA-Public Use
  Company Number: FR-AMGEN-FRASP2013060165

PATIENT
  Sex: Female
  Weight: 3.09 kg

DRUGS (5)
  1. ENBREL [Suspect]
     Indication: PRODUCT USED FOR UNKNOWN INDICATION
     Dosage: UNK
     Route: 064
     Dates: end: 20130417
  2. ENBREL [Suspect]
     Indication: PRODUCT USED FOR UNKNOWN INDICATION
     Dosage: UNK
     Route: 064
     Dates: end: 20130417
  3. ENBREL [Suspect]
     Dosage: 50 MG, WEEKLY
     Route: 064
     Dates: start: 20130418, end: 20130721
  4. ENBREL [Suspect]
     Dosage: 50 MG, WEEKLY
     Route: 064
     Dates: start: 20130418, end: 20130721
  5. CORTANCYL [Suspect]
     Indication: RHEUMATOID ARTHRITIS
     Dosage: 5 MG, 1X/DAY
     Route: 064
     Dates: end: 20130722

REACTIONS (4)
  - Maternal exposure during pregnancy [Unknown]
  - Therapy change [Unknown]
  - Inappropriate schedule of drug administration [Recovering/Resolving]
  - Exposure during breast feeding [Unknown]
